FAERS Safety Report 6260470-3 (Version None)
Quarter: 2009Q3

REPORT INFORMATION
  Report Type: 
  Country: None (occurrence: None)
  Receive Date: 20090708
  Receipt Date: 20090629
  Transmission Date: 20100115
  Serious: Yes (Other)
  Sender: FDA-Public Use
  Company Number: US-JNJFOC-20090700183

PATIENT
  Sex: Female

DRUGS (1)
  1. TRAMADOL IR [Suspect]
     Indication: ARTHRALGIA
     Route: 065

REACTIONS (1)
  - MYOCARDIAL INFARCTION [None]
